FAERS Safety Report 12311441 (Version 1)
Quarter: 2016Q2

REPORT INFORMATION
  Report Type: Spontaneous
  Country: US (occurrence: US)
  Receive Date: 20160427
  Receipt Date: 20160427
  Transmission Date: 20160815
  Serious: No
  Sender: FDA-Public Use
  Company Number: US-BIOCOMPATIBLES UK LTD-BTG00380

PATIENT

DRUGS (2)
  1. VORAXAZE [Suspect]
     Active Substance: GLUCARPIDASE
     Indication: PRODUCT USED FOR UNKNOWN INDICATION
     Dosage: 4000 UNITS, UNK
     Dates: start: 201508
  2. VORAXAZE [Suspect]
     Active Substance: GLUCARPIDASE
     Dosage: 1600 UNITS, UNK
     Dates: start: 201508

REACTIONS (1)
  - Underdose [None]

NARRATIVE: CASE EVENT DATE: 201508
